FAERS Safety Report 9537932 (Version 1)
Quarter: 2013Q3

REPORT INFORMATION
  Report Type: Spontaneous
  Country: CU (occurrence: CU)
  Receive Date: 20130919
  Receipt Date: 20130919
  Transmission Date: 20140515
  Serious: Yes (Other)
  Sender: FDA-Public Use
  Company Number: PHHY2013CU101455

PATIENT
  Age: 38 Year
  Sex: Female

DRUGS (1)
  1. QUINIDINE [Suspect]

REACTIONS (1)
  - Gastrointestinal disorder [Recovered/Resolved]
